FAERS Safety Report 7892660-8 (Version None)
Quarter: 2011Q4

REPORT INFORMATION
  Report Type: 
  Country: None (occurrence: None)
  Receive Date: 20111102
  Receipt Date: 20111020
  Transmission Date: 20120403
  Serious: Yes (Death)
  Sender: FDA-Public Use
  Company Number: KAD201110-000039

PATIENT
  Age: 24 Year
  Sex: Male

DRUGS (9)
  1. DEFEROXAMINE MESYLATE [Suspect]
  2. ASPIRIN [Suspect]
  3. AMPHOTERICIN B [Suspect]
  4. IBUPROFEN [Suspect]
  5. KETAMINE HCL [Suspect]
  6. ACETAMINOPHEN [Suspect]
     Dosage: 100 TABLETS (50 G)
  7. IRON (IRON) (TABLETS) [Suspect]
  8. VORICONAZOLE [Suspect]
  9. PULSE STEROIDS (STEROIDS) GRAFT REJECTION [Suspect]

REACTIONS (8)
  - GENERAL PHYSICAL HEALTH DETERIORATION [None]
  - SYSTEMIC MYCOSIS [None]
  - ASPERGILLOSIS [None]
  - HEPATIC STEATOSIS [None]
  - CHOLESTASIS [None]
  - MULTIPLE DRUG OVERDOSE [None]
  - NERVOUS SYSTEM DISORDER [None]
  - BRAIN DEATH [None]
